FAERS Safety Report 10241442 (Version 1)
Quarter: 2014Q2

REPORT INFORMATION
  Report Type: Spontaneous
  Country: US (occurrence: None)
  Receive Date: 20140613
  Receipt Date: 20140613
  Transmission Date: 20141212
  Serious: Yes (Death)
  Sender: FDA-Public Use
  Company Number: 2014RT000026

PATIENT
  Age: 45 Year
  Sex: Male
  Weight: 68 kg

DRUGS (6)
  1. PROCYSBI (CYSTEAMINE BITARTRATE) CAPSULE, DELAYED RELEASE [Suspect]
     Indication: CYSTINOSIS
     Route: 048
     Dates: start: 201312
  2. CYSTEAMINE (MERCAPTAMINE) [Concomitant]
  3. INSULIN (INSULIN) [Concomitant]
  4. DULOXETINE (DULOXETINE) [Concomitant]
  5. TRAMETINIB (TRAMETINIB) [Concomitant]
  6. DALTEPARIN (DALTEPARIN) [Concomitant]

REACTIONS (2)
  - Malignant melanoma [None]
  - Malignant neoplasm progression [None]
